FAERS Safety Report 21798159 (Version 5)
Quarter: 2023Q2

REPORT INFORMATION
  Report Type: Report from Study
  Country: US (occurrence: US)
  Receive Date: 20221230
  Receipt Date: 20230623
  Transmission Date: 20230722
  Serious: Yes (Other)
  Sender: FDA-Public Use
  Company Number: US-002147023-NVSC2022US298694

PATIENT
  Age: 37 Year
  Sex: Female

DRUGS (1)
  1. KESIMPTA [Suspect]
     Active Substance: OFATUMUMAB
     Indication: Relapsing multiple sclerosis
     Dosage: 20 MG, QMO
     Route: 058
     Dates: start: 20221028

REACTIONS (16)
  - Thoracic vertebral fracture [Unknown]
  - Osteoporosis [Unknown]
  - Osteopenia [Unknown]
  - Gingival disorder [Unknown]
  - Aphthous ulcer [Unknown]
  - Bladder spasm [Unknown]
  - COVID-19 [Recovered/Resolved]
  - Vision blurred [Unknown]
  - White blood cell count decreased [Unknown]
  - Neutrophil count decreased [Unknown]
  - Back pain [Unknown]
  - Weight decreased [Unknown]
  - Urinary tract infection [Recovered/Resolved]
  - Urinary tract infection [Recovered/Resolved]
  - Urinary tract infection [Unknown]
  - Bladder pain [Recovering/Resolving]

NARRATIVE: CASE EVENT DATE: 20221101
